FAERS Safety Report 9355528 (Version 3)
Quarter: 2014Q4

REPORT INFORMATION
  Report Type: Report from Study
  Country: US (occurrence: US)
  Receive Date: 20130619
  Receipt Date: 20141031
  Transmission Date: 20150529
  Serious: Yes (Hospitalization, Other)
  Sender: FDA-Public Use
  Company Number: US-SANOFI-AVENTIS-2013SA060829

PATIENT
  Age: 47 Year
  Sex: Male
  Weight: 74.8 kg

DRUGS (15)
  1. AMINOPYRIDINE [Suspect]
     Active Substance: DALFAMPRIDINE
     Indication: GAIT DISTURBANCE
     Route: 048
     Dates: start: 20130424
  2. OXYCONTIN [Concomitant]
     Active Substance: OXYCODONE HYDROCHLORIDE
  3. AMINOPYRIDINE [Suspect]
     Active Substance: DALFAMPRIDINE
     Indication: GAIT DISTURBANCE
     Route: 048
     Dates: start: 201303, end: 20130421
  4. AUBAGIO [Suspect]
     Active Substance: TERIFLUNOMIDE
     Indication: PRODUCT USED FOR UNKNOWN INDICATION
     Route: 048
  5. PRENATAL [Concomitant]
     Active Substance: VITAMINS
  6. COSAMIN [Concomitant]
  7. TESTOSTERONE. [Concomitant]
     Active Substance: TESTOSTERONE
  8. XANAX [Concomitant]
     Active Substance: ALPRAZOLAM
  9. ABILIFY [Concomitant]
     Active Substance: ARIPIPRAZOLE
  10. CLARITIN [Concomitant]
     Active Substance: LORATADINE
  11. CORTICOTROPIN [Suspect]
     Active Substance: CORTICOTROPIN
     Indication: MULTIPLE SCLEROSIS
     Dates: start: 201303
  12. OXYCODONE HYDROCHLORIDE. [Concomitant]
     Active Substance: OXYCODONE HYDROCHLORIDE
  13. ADDERALL [Concomitant]
     Active Substance: AMPHETAMINE ASPARTATE\AMPHETAMINE SULFATE\DEXTROAMPHETAMINE SACCHARATE\DEXTROAMPHETAMINE SULFATE
  14. ZOFRAN [Concomitant]
     Active Substance: ONDANSETRON HYDROCHLORIDE
  15. ACETYLSALICYLIC ACID/CARISOPRODOL [Concomitant]
     Active Substance: ASPIRIN\CARISOPRODOL

REACTIONS (10)
  - Blood potassium decreased [None]
  - Transient ischaemic attack [Unknown]
  - Multiple sclerosis relapse [Unknown]
  - Insomnia [Unknown]
  - Constipation [Unknown]
  - Drug dose omission [Unknown]
  - Fall [Unknown]
  - Asthenia [Unknown]
  - Blood potassium abnormal [Unknown]
  - Balance disorder [Unknown]

NARRATIVE: CASE EVENT DATE: 20130326
